FAERS Safety Report 7264477-9 (Version None)
Quarter: 2011Q1

REPORT INFORMATION
  Report Type: 
  Country: None (occurrence: None)
  Receive Date: 20110131
  Receipt Date: 20110119
  Transmission Date: 20110831
  Serious: No
  Sender: FDA-Public Use
  Company Number: US-PFIZER INC-2011013704

PATIENT
  Sex: Female
  Weight: 78.912 kg

DRUGS (7)
  1. ADVAIR [Concomitant]
     Indication: CHRONIC OBSTRUCTIVE PULMONARY DISEASE
     Dosage: UNK
  2. ALBUTEROL [Concomitant]
     Indication: CHRONIC OBSTRUCTIVE PULMONARY DISEASE
     Dosage: UNK
  3. PRISTIQ [Suspect]
     Indication: HEADACHE
  4. PRISTIQ [Suspect]
     Indication: PAIN MANAGEMENT
     Dosage: 50 MG, 1X/DAY
     Route: 048
     Dates: start: 20101230, end: 20110105
  5. LISINOPRIL [Concomitant]
     Indication: HYPERTENSION
     Dosage: 20 MG, UNK
  6. CYCLOBENZAPRINE [Concomitant]
     Indication: MUSCLE SPASMS
     Dosage: UNK
  7. IBUPROFEN [Concomitant]
     Indication: PAIN
     Dosage: UNK

REACTIONS (5)
  - OFF LABEL USE [None]
  - PAIN [None]
  - SKIN LESION [None]
  - RASH [None]
  - DIARRHOEA [None]
